FAERS Safety Report 15856015 (Version 1)
Quarter: 2019Q1

REPORT INFORMATION
  Report Type: Spontaneous
  Country: JP (occurrence: JP)
  Receive Date: 20190123
  Receipt Date: 20190123
  Transmission Date: 20190417
  Serious: Yes (Other)
  Sender: FDA-Public Use
  Company Number: JP-SUN PHARMACEUTICAL INDUSTRIES LTD-2019R1-196781

PATIENT
  Age: 23 Year
  Sex: Female

DRUGS (13)
  1. TRIAMCINOLONE [Suspect]
     Active Substance: TRIAMCINOLONE
     Indication: ALOPECIA AREATA
     Dosage: 40 MILLIGRAM, 5DOSE/WEEK
     Route: 026
     Dates: start: 201101, end: 201102
  2. SQUARIC ACID DIBUTYLESTER [Concomitant]
     Active Substance: SQUARIC ACID DIBUTYL ESTER
     Indication: AUTOIMMUNE DISORDER
     Dosage: FOUR COURSES
     Route: 065
     Dates: start: 201106, end: 201303
  3. CEPHARANTHINE [Concomitant]
     Active Substance: CEPHARANTHINE
     Indication: ALOPECIA AREATA
     Dosage: UNK
     Route: 048
  4. METHYLPREDNISOLONE. [Suspect]
     Active Substance: METHYLPREDNISOLONE
     Dosage: THIRD COURSE OF 1,500 MG CORTICOSTEROID THERAPY WAS ADMINISTERED FOR 3 DAYS
     Route: 065
  5. PREDNISOLONE. [Suspect]
     Active Substance: PREDNISOLONE
     Indication: STEROID THERAPY
     Dosage: 25 MILLIGRAM, DAILY
     Route: 065
     Dates: start: 201509
  6. CEPHARANTHINE [Concomitant]
     Active Substance: CEPHARANTHINE
     Indication: STEROID THERAPY
  7. METHYLPREDNISOLONE. [Suspect]
     Active Substance: METHYLPREDNISOLONE
     Indication: STEROID THERAPY
     Dosage: SECOND COURSE OF 1,500 MG CORTICOSTEROID THERAPY WAS ADMINISTERED FOR 3 DAYS
     Route: 065
     Dates: end: 2013
  8. PREDNISOLONE. [Suspect]
     Active Substance: PREDNISOLONE
     Indication: ALOPECIA AREATA
     Dosage: 5 MILLIGRAM, DAILY
     Route: 065
  9. MOMETASONE [Suspect]
     Active Substance: MOMETASONE
     Indication: ALOPECIA AREATA
     Dosage: UNK
     Route: 061
  10. TRIAMCINOLONE [Suspect]
     Active Substance: TRIAMCINOLONE
     Indication: STEROID THERAPY
  11. SQUARIC ACID DIBUTYLESTER [Concomitant]
     Active Substance: SQUARIC ACID DIBUTYL ESTER
     Dosage: UNK
     Route: 065
     Dates: start: 201403, end: 201509
  12. METHYLPREDNISOLONE. [Suspect]
     Active Substance: METHYLPREDNISOLONE
     Indication: ALOPECIA AREATA
     Dosage: 500 MG METHYLPREDNISOLONE FOR 3 DAYS
     Route: 042
     Dates: start: 201305
  13. MOMETASONE [Suspect]
     Active Substance: MOMETASONE
     Indication: STEROID THERAPY

REACTIONS (1)
  - Osteonecrosis [Recovering/Resolving]

NARRATIVE: CASE EVENT DATE: 201602
